FAERS Safety Report 6423221-5 (Version None)
Quarter: 2009Q4

REPORT INFORMATION
  Report Type: 
  Country: None (occurrence: None)
  Receive Date: 20091102
  Receipt Date: 20091023
  Transmission Date: 20100525
  Serious: Yes (Other)
  Sender: FDA-Public Use
  Company Number: BR-ABBOTT-09P-020-0605333-00

PATIENT
  Age: 17 Year
  Sex: Female
  Weight: 64 kg

DRUGS (4)
  1. DEPAKOTE ER [Suspect]
     Indication: CONVULSION
     Route: 048
     Dates: start: 20091016
  2. DEPAKOTE ER [Suspect]
  3. PREDNISONE [Concomitant]
     Indication: OROPHARYNGEAL PAIN
     Route: 048
  4. PREDNISONE [Concomitant]

REACTIONS (1)
  - CONVULSION [None]
